FAERS Safety Report 5102785-8 (Version None)
Quarter: 2006Q3

REPORT INFORMATION
  Report Type: 
  Country: None (occurrence: None)
  Receive Date: 20060907
  Receipt Date: 20060824
  Transmission Date: 20061208
  Serious: Yes (Other)
  Sender: FDA-Public Use
  Company Number: 2006BH012992

PATIENT
  Age: 70 Year
  Sex: Female

DRUGS (8)
  1. DEXAMETHASONE TAB [Suspect]
     Indication: LYMPHOMA
     Dosage: 40 MG/M **2; UNK; IVDRP
     Route: 041
  2. ENDOXAN JAPAN (CYCLOPHOSPHAMIDE) [Suspect]
     Indication: LYMPHOMA
     Dosage: 600 MG/M**2; UNK; IVDRI, 1000 MG/M**2; UNK, IVDRI
     Route: 041
  3. PIRARUBICIN HYDROCHLORIDE (NO PREF. NAME) [Suspect]
     Indication: LYMPHOMA
     Dosage: 40 MG/M**2; UNK; IVDRI
     Route: 041
  4. ONCOVIN [Suspect]
     Indication: LYMPHOMA
     Dosage: 2 MG; UNK; IVDRI
     Route: 041
  5. ETOPOSIDE [Suspect]
     Indication: LYMPHOMA
     Dosage: 80 MG/M**2; UNK; IVDRP
     Route: 041
  6. CYTARABINE [Suspect]
     Indication: LYMPHOMA
     Dosage: 1600 MG/M**2; UNK; IVDRI
     Route: 041
  7. RITUXIMAB (RITUXIMAB) [Suspect]
     Indication: LYMPHOMA
     Dosage: 375 MG/M**2; UNK; IVDRI
     Route: 041
  8. PREDONINE [Concomitant]

REACTIONS (3)
  - NEUTROPHIL COUNT DECREASED [None]
  - SEPSIS [None]
  - WHITE BLOOD CELL COUNT DECREASED [None]
